FAERS Safety Report 12484979 (Version 1)
Quarter: 2016Q2

REPORT INFORMATION
  Report Type: Spontaneous
  Country: US (occurrence: None)
  Receive Date: 20160620
  Receipt Date: 20160620
  Transmission Date: 20160815
  Serious: Yes (Hospitalization, Other)
  Sender: FDA-Public Use
  Company Number: None

PATIENT
  Age: 62 Year
  Sex: Male
  Weight: 115.67 kg

DRUGS (36)
  1. DIOVAN [Concomitant]
     Active Substance: VALSARTAN
  2. FOLTANX [Concomitant]
  3. TRICLOR [Concomitant]
     Active Substance: CHLORAMPHENICOL
  4. XANAX [Concomitant]
     Active Substance: ALPRAZOLAM
  5. ZOLPIDEM TARTRATE. [Concomitant]
     Active Substance: ZOLPIDEM TARTRATE
  6. HUMALOG [Concomitant]
     Active Substance: INSULIN LISPRO
  7. LEVOTHYROXINE. [Concomitant]
     Active Substance: LEVOTHYROXINE
  8. NEXIUM [Concomitant]
     Active Substance: ESOMEPRAZOLE MAGNESIUM
  9. PLAVIX [Concomitant]
     Active Substance: CLOPIDOGREL BISULFATE
  10. AMBIEN [Concomitant]
     Active Substance: ZOLPIDEM TARTRATE
  11. CHLORTHALIDONE. [Concomitant]
     Active Substance: CHLORTHALIDONE
  12. FINASTERIDE. [Concomitant]
     Active Substance: FINASTERIDE
  13. FLONASE [Concomitant]
     Active Substance: FLUTICASONE PROPIONATE
  14. LIPITOR [Concomitant]
     Active Substance: ATORVASTATIN CALCIUM
  15. RANEXA [Concomitant]
     Active Substance: RANOLAZINE
  16. RAPAFLO [Concomitant]
     Active Substance: SILODOSIN
  17. TOUJEO [Concomitant]
     Active Substance: INSULIN GLARGINE
  18. TRAMADOL. [Concomitant]
     Active Substance: TRAMADOL
  19. ZEBUTAL [Concomitant]
     Active Substance: ACETAMINOPHEN\BUTALBITAL\CAFFEINE
  20. ALLEGRA [Concomitant]
     Active Substance: FEXOFENADINE HYDROCHLORIDE
  21. JARDIANCE [Concomitant]
     Active Substance: EMPAGLIFLOZIN
  22. DEPO TESTOSTERONE [Concomitant]
     Active Substance: TESTOSTERONE
  23. GLIMERPRIDE [Concomitant]
  24. NITROSTAT [Concomitant]
     Active Substance: NITROGLYCERIN
  25. POTASSIUM CL ER [Concomitant]
     Active Substance: POTASSIUM CHLORIDE
  26. LEXISCAN [Suspect]
     Active Substance: REGADENOSON
     Indication: CARDIAC STRESS TEST
     Dosage: INJECTION PRIO TO INTO A VEIN
     Route: 042
     Dates: start: 20160609, end: 20160609
  27. ATORVASTATIN [Concomitant]
     Active Substance: ATORVASTATIN
  28. COREG [Concomitant]
     Active Substance: CARVEDILOL
  29. GABAPENTIN. [Concomitant]
     Active Substance: GABAPENTIN
  30. L-METHYL-B-6-B12 [Concomitant]
  31. PERCOCET [Concomitant]
     Active Substance: ACETAMINOPHEN\OXYCODONE HYDROCHLORIDE
  32. ISOSORBIDE MN ER [Concomitant]
     Active Substance: ISOSORBIDE
  33. VALSARTAN. [Concomitant]
     Active Substance: VALSARTAN
  34. ASPIRIN. [Concomitant]
     Active Substance: ASPIRIN
  35. INVOKANA [Concomitant]
     Active Substance: CANAGLIFLOZIN
  36. LIDOCAINE. [Concomitant]
     Active Substance: LIDOCAINE

REACTIONS (4)
  - Vomiting [None]
  - Nausea [None]
  - Malaise [None]
  - Chest pain [None]

NARRATIVE: CASE EVENT DATE: 20160609
